FAERS Safety Report 9322902 (Version 1)
Quarter: 2013Q2

REPORT INFORMATION
  Report Type: Report from Study
  Country: BR (occurrence: BR)
  Receive Date: 20130602
  Receipt Date: 20130602
  Transmission Date: 20140414
  Serious: Yes (Other)
  Sender: FDA-Public Use
  Company Number: PHHY2013BR054834

PATIENT
  Sex: Female
  Weight: 52 kg

DRUGS (7)
  1. EXELON PATCH [Suspect]
     Indication: DAYDREAMING
     Dosage: 4.6 MG / 24 HOURS (9MG/5CM2)
     Route: 062
  2. EXELON PATCH [Suspect]
     Indication: OFF LABEL USE
  3. RAZAPINA [Concomitant]
     Dosage: UNK UKN, UNK
  4. DIAZEPAM [Concomitant]
     Dosage: UNK UKN, UNK
  5. ARADOIS [Concomitant]
     Dosage: UNK UKN, UNK
  6. ATENOLOL [Concomitant]
     Indication: ARRHYTHMIA
     Dosage: UNK UKN, UNK
  7. EPREX [Concomitant]
     Indication: ANAEMIA
     Dosage: ONCE A WEEK

REACTIONS (7)
  - Skeletal injury [Not Recovered/Not Resolved]
  - Fall [Not Recovered/Not Resolved]
  - Memory impairment [Not Recovered/Not Resolved]
  - Apathy [Not Recovered/Not Resolved]
  - Repetitive speech [Not Recovered/Not Resolved]
  - Abdominal discomfort [Not Recovered/Not Resolved]
  - Daydreaming [Not Recovered/Not Resolved]
